FAERS Safety Report 20299429 (Version 1)
Quarter: 2022Q1

REPORT INFORMATION
  Report Type: Spontaneous
  Country: ES (occurrence: ES)
  Receive Date: 20220105
  Receipt Date: 20220105
  Transmission Date: 20220423
  Serious: Yes (Hospitalization, Other)
  Sender: FDA-Public Use
  Company Number: ES-BAYER-2017-059156

PATIENT
  Age: 48 Year
  Sex: Male

DRUGS (23)
  1. ARIPIPRAZOLE [Suspect]
     Active Substance: ARIPIPRAZOLE
     Indication: Product used for unknown indication
     Dosage: 5 MG, QD
     Route: 065
  2. ARIPIPRAZOLE [Suspect]
     Active Substance: ARIPIPRAZOLE
     Dosage: 30 MG, QD
     Route: 065
  3. LORMETAZEPAM [Suspect]
     Active Substance: LORMETAZEPAM
     Indication: Insomnia
     Dosage: 4 MG, QD
     Route: 065
  4. LORMETAZEPAM [Suspect]
     Active Substance: LORMETAZEPAM
     Indication: Mania
     Dosage: 2 MG, QD
     Route: 065
  5. VALPROMIDE [Suspect]
     Active Substance: VALPROMIDE
     Indication: Mania
     Dosage: 2400 MG, QD
     Route: 065
  6. LORAZEPAM [Suspect]
     Active Substance: LORAZEPAM
     Indication: Mania
     Dosage: 2 MG, QD
     Route: 065
  7. LORAZEPAM [Suspect]
     Active Substance: LORAZEPAM
     Dosage: 3.5 MG, QD
     Route: 065
  8. TRIHEXYPHENIDYL [Suspect]
     Active Substance: TRIHEXYPHENIDYL
     Indication: Product used for unknown indication
     Dosage: 5 MG, QD
     Route: 065
  9. CLOTHIAPINE [Suspect]
     Active Substance: CLOTHIAPINE
     Indication: Mania
     Dosage: 30 MG, QD
     Route: 065
  10. CLOTHIAPINE [Suspect]
     Active Substance: CLOTHIAPINE
     Dosage: 20 MG, QD
     Route: 065
  11. LITHIUM CARBONATE [Suspect]
     Active Substance: LITHIUM CARBONATE
     Indication: Mania
     Dosage: 1200 MG, QD
     Route: 065
  12. CLOZAPINE [Suspect]
     Active Substance: CLOZAPINE
     Indication: Mania
     Dosage: 25 MG, QD
     Route: 065
  13. CLOZAPINE [Suspect]
     Active Substance: CLOZAPINE
     Dosage: 300 MG, QD
     Route: 065
  14. CLOZAPINE [Suspect]
     Active Substance: CLOZAPINE
     Dosage: 100 MG, QD
     Route: 065
  15. CLOZAPINE [Suspect]
     Active Substance: CLOZAPINE
     Dosage: 75 MG, QD
     Route: 065
  16. VALPROIC ACID [Suspect]
     Active Substance: VALPROIC ACID
     Indication: Psychotic disorder
     Dosage: 2000 MG, QD
     Route: 065
  17. PERPHENAZINE [Suspect]
     Active Substance: PERPHENAZINE
     Indication: Product used for unknown indication
     Dosage: 8 MG, QD
     Route: 065
  18. NEBIVOLOL [Concomitant]
     Active Substance: NEBIVOLOL
     Indication: Product used for unknown indication
     Dosage: UNK
     Route: 065
  19. ALLOPURINOL [Concomitant]
     Active Substance: ALLOPURINOL
     Indication: Product used for unknown indication
     Dosage: UNK
     Route: 065
  20. FUROSEMIDE [Concomitant]
     Active Substance: FUROSEMIDE
     Indication: Product used for unknown indication
     Dosage: UNK
     Route: 065
  21. INSULIN NOS [Concomitant]
     Active Substance: INSULIN NOS
     Indication: Product used for unknown indication
     Dosage: UNK
     Route: 065
  22. METFORMIN [Concomitant]
     Active Substance: METFORMIN HYDROCHLORIDE
     Indication: Product used for unknown indication
     Dosage: UNK
     Route: 065
  23. ENALAPRIL [Concomitant]
     Active Substance: ENALAPRIL
     Indication: Product used for unknown indication
     Dosage: UNK
     Route: 065

REACTIONS (10)
  - C-reactive protein increased [Unknown]
  - Renal impairment [Unknown]
  - Respiratory tract infection [Unknown]
  - Lethargy [Unknown]
  - Blood creatine phosphokinase increased [Unknown]
  - Neuroleptic malignant syndrome [Unknown]
  - Agitation [Unknown]
  - Pyrexia [Unknown]
  - Pyrexia [Unknown]
  - Hyperhidrosis [Unknown]

NARRATIVE: CASE EVENT DATE: 20120301
